FAERS Safety Report 4750992-6 (Version None)
Quarter: 2005Q3

REPORT INFORMATION
  Report Type: 
  Country: None (occurrence: None)
  Receive Date: 20050822
  Receipt Date: 20050808
  Transmission Date: 20060218
  Serious: Yes (Other)
  Sender: FDA-Public Use
  Company Number: 2005112332

PATIENT
  Age: 37 Year
  Sex: Female

DRUGS (1)
  1. BENADRYL [Suspect]
     Indication: ALLERGY TO ANIMAL
     Dosage: DOSE DAILY, ORAL
     Route: 048
     Dates: start: 19950101

REACTIONS (4)
  - CONFUSIONAL STATE [None]
  - DEPENDENCE [None]
  - PARANOIA [None]
  - PSYCHOTIC DISORDER [None]
